FAERS Safety Report 5342815-1 (Version None)
Quarter: 2007Q2

REPORT INFORMATION
  Report Type: 
  Country: None (occurrence: None)
  Receive Date: 20070601
  Receipt Date: 20070524
  Transmission Date: 20071010
  Serious: Yes (Life-Threatening)
  Sender: FDA-Public Use
  Company Number: CH-MERCK-0705USA05226

PATIENT
  Age: 78 Year
  Sex: Male

DRUGS (8)
  1. HYDRODIURIL [Suspect]
     Route: 048
  2. ATENOLOL [Concomitant]
     Route: 065
  3. PANTOPRAZOLE [Concomitant]
     Route: 065
  4. ASPIRIN [Concomitant]
     Route: 065
  5. ISOSORBIDE MONONITRATE [Concomitant]
     Route: 065
  6. SPIRONOLACTONE [Concomitant]
     Route: 065
  7. AMILORIDE [Concomitant]
     Route: 065
  8. FUROSEMIDE [Concomitant]
     Route: 065

REACTIONS (2)
  - BLOOD POTASSIUM ABNORMAL [None]
  - VENTRICULAR TACHYCARDIA [None]
